FAERS Safety Report 12950041 (Version 2)
Quarter: 2016Q4

REPORT INFORMATION
  Report Type: Spontaneous
  Country: MY (occurrence: MY)
  Receive Date: 20161117
  Receipt Date: 20161212
  Transmission Date: 20170207
  Serious: Yes (Other)
  Sender: FDA-Public Use
  Company Number: MY-JNJFOC-20161114167

PATIENT
  Age: 49 Year
  Sex: Male

DRUGS (13)
  1. CYTARABINE. [Suspect]
     Active Substance: CYTARABINE
     Indication: PROPHYLACTIC CHEMOTHERAPY
     Dosage: GIVEN DURING EVERY CYCLE
     Route: 037
  2. DOXORUBICIN HYDROCHLORIDE. [Suspect]
     Active Substance: DOXORUBICIN HYDROCHLORIDE
     Indication: PLASMABLASTIC LYMPHOMA
     Dosage: GIVEN AS PART OF R-CHOP REGIMEN
     Route: 065
  3. CYCLOPHOSPHAMIDE. [Suspect]
     Active Substance: CYCLOPHOSPHAMIDE
     Indication: PLASMABLASTIC LYMPHOMA
     Dosage: GIVEN AS PART OF R-HYPERCVAD REGIMEN
     Route: 065
  4. METHOTREXATE. [Suspect]
     Active Substance: METHOTREXATE
     Indication: PROPHYLACTIC CHEMOTHERAPY
     Dosage: GIVEN DURING EVEERY CYCLE
     Route: 037
  5. DEXAMETHASONE. [Suspect]
     Active Substance: DEXAMETHASONE
     Indication: PLASMABLASTIC LYMPHOMA
     Dosage: GIVEN AS PART OF R-HYPERCVAD REGIMEN
     Route: 065
  6. RITUXIMAB [Suspect]
     Active Substance: RITUXIMAB
     Indication: PLASMABLASTIC LYMPHOMA
     Dosage: GIVEN AS PERT OF R-HYPERCVAD REGIMEN
     Route: 065
  7. CYCLOPHOSPHAMIDE. [Suspect]
     Active Substance: CYCLOPHOSPHAMIDE
     Indication: PLASMABLASTIC LYMPHOMA
     Dosage: GIVEN AS PART OF R-CHOP REGIMEN
     Route: 065
  8. HYDROCORTISONE. [Suspect]
     Active Substance: HYDROCORTISONE
     Indication: PROPHYLACTIC CHEMOTHERAPY
     Dosage: GIVEN DURING EVERY CYCLE
     Route: 037
  9. PREDNISOLONE. [Suspect]
     Active Substance: PREDNISOLONE
     Indication: PLASMABLASTIC LYMPHOMA
     Dosage: GIVEN AS PART OF R-CHOP REGIMEN
  10. DOXORUBICIN HYDROCHLORIDE. [Suspect]
     Active Substance: DOXORUBICIN HYDROCHLORIDE
     Indication: PLASMABLASTIC LYMPHOMA
     Dosage: GIVEN AS PART OF R-HYPERCVAD REGIMEN
     Route: 065
  11. VINCRISTINE [Suspect]
     Active Substance: VINCRISTINE
     Indication: PLASMABLASTIC LYMPHOMA
     Dosage: GIVEN AS PART OF R-CHOP REGIMEN
     Route: 065
  12. VINCRISTINE [Suspect]
     Active Substance: VINCRISTINE
     Indication: PLASMABLASTIC LYMPHOMA
     Dosage: GIVEN AS PART OF R-HYPERCVAD REGIMEN
     Route: 065
  13. RITUXIMAB [Suspect]
     Active Substance: RITUXIMAB
     Indication: PLASMABLASTIC LYMPHOMA
     Dosage: GIVEN AS PART OF R-CHOP REGIMEN
     Route: 065

REACTIONS (5)
  - Neutropenic sepsis [Recovered/Resolved]
  - Off label use [Unknown]
  - Neutropenia [Recovered/Resolved]
  - Product use issue [Unknown]
  - Respiratory failure [Recovered/Resolved]
